FAERS Safety Report 21907667 (Version 1)
Quarter: 2023Q1

REPORT INFORMATION
  Report Type: Spontaneous
  Country: US (occurrence: US)
  Receive Date: 20230125
  Receipt Date: 20230125
  Transmission Date: 20230418
  Serious: No
  Sender: FDA-Public Use
  Company Number: US-drreddys-SPO/USA/23/0159530

PATIENT
  Age: 69 Year
  Sex: Female

DRUGS (8)
  1. LENALIDOMIDE [Suspect]
     Active Substance: LENALIDOMIDE
     Indication: Plasma cell myeloma
     Dosage: FOR 21 DAYS THEN 7 DAYS OFF
     Route: 048
     Dates: start: 20221104
  2. ACYCLOVIR [Concomitant]
     Active Substance: ACYCLOVIR
     Indication: Product used for unknown indication
  3. ASPIRIN TBE 81MG [Concomitant]
     Indication: Product used for unknown indication
  4. DEXAMETHASONE [Concomitant]
     Active Substance: DEXAMETHASONE
     Indication: Product used for unknown indication
  5. GABAPENTIN [Concomitant]
     Active Substance: GABAPENTIN
     Indication: Product used for unknown indication
  6. NEUPOGEN SOS  300MCG/0.5ML [Concomitant]
     Indication: Product used for unknown indication
     Dosage: SOS 300MCG/0.5ML
  7. VALACYCLOVIR TAB 500MG [Concomitant]
     Indication: Product used for unknown indication
  8. ZARXIO SOS 300MCG/0.5ML [Concomitant]
     Indication: Product used for unknown indication
     Dosage: SOS 300MCG/0.5ML

REACTIONS (1)
  - Product dose omission issue [Unknown]
